FAERS Safety Report 18844454 (Version 1)
Quarter: 2021Q1

REPORT INFORMATION
  Report Type: Spontaneous
  Country: US (occurrence: US)
  Receive Date: 20210203
  Receipt Date: 20210203
  Transmission Date: 20210419
  Serious: Yes (Hospitalization)
  Sender: FDA-Public Use
  Company Number: US-BIOMARINAP-US-2021-134561

PATIENT
  Sex: Male
  Weight: 81.63 kg

DRUGS (4)
  1. PALYNZIQ [Suspect]
     Active Substance: PEGVALIASE-PQPZ
     Indication: PHENYLKETONURIA
     Dosage: 40 MILLIGRAM, QD
     Route: 058
  2. PALYNZIQ [Suspect]
     Active Substance: PEGVALIASE-PQPZ
     Dosage: UNK
     Route: 058
     Dates: start: 20190424
  3. ARIPIPRAZOLE. [Concomitant]
     Active Substance: ARIPIPRAZOLE
     Indication: PRODUCT USED FOR UNKNOWN INDICATION
     Dosage: 5 MILLIGRAM, QD
  4. EFFEXOR [Concomitant]
     Active Substance: VENLAFAXINE HYDROCHLORIDE
     Indication: PRODUCT USED FOR UNKNOWN INDICATION
     Dosage: 50 MILLIGRAM, QD

REACTIONS (9)
  - Psychotic disorder [Unknown]
  - Insomnia [Unknown]
  - Drug ineffective [Unknown]
  - Vitamin B12 decreased [Unknown]
  - Paranoia [Unknown]
  - Disorientation [Unknown]
  - Weight increased [Unknown]
  - Hallucination, auditory [Unknown]
  - Amino acid level increased [Unknown]

NARRATIVE: CASE EVENT DATE: 202101
